FAERS Safety Report 17428958 (Version 1)
Quarter: 2020Q1

REPORT INFORMATION
  Report Type: Spontaneous
  Country: JP (occurrence: JP)
  Receive Date: 20200217
  Receipt Date: 20200217
  Transmission Date: 20200409
  Serious: Yes (Other)
  Sender: FDA-Public Use
  Company Number: JP-009507513-2002JPN001082J

PATIENT
  Age: 7 Decade
  Sex: Male

DRUGS (4)
  1. KEYTRUDA [Suspect]
     Active Substance: PEMBROLIZUMAB
     Indication: NON-SMALL CELL LUNG CANCER
     Dosage: 200 MILLIGRAM, Q3W
     Route: 041
  2. ABRAXANE [Suspect]
     Active Substance: PACLITAXEL
     Dosage: UNK
     Route: 041
  3. ABRAXANE [Suspect]
     Active Substance: PACLITAXEL
     Dosage: UNK
     Route: 041
  4. CARBOPLATIN. [Suspect]
     Active Substance: CARBOPLATIN
     Dosage: UNK
     Route: 042

REACTIONS (7)
  - Neuropathy peripheral [Unknown]
  - Alopecia [Unknown]
  - Decreased appetite [Recovered/Resolved]
  - Oedema peripheral [Unknown]
  - Diarrhoea [Recovered/Resolved]
  - Nausea [Recovered/Resolved]
  - Malaise [Recovered/Resolved]
